FAERS Safety Report 18122551 (Version 2)
Quarter: 2020Q3

REPORT INFORMATION
  Report Type: Other
  Country: NL (occurrence: NL)
  Receive Date: 20200807
  Receipt Date: 20200813
  Transmission Date: 20201103
  Serious: Yes (Other)
  Sender: FDA-Public Use
  Company Number: NL-ASTELLAS-2020US026670

PATIENT
  Age: 26 Year
  Sex: Male

DRUGS (2)
  1. VESICARE [Concomitant]
     Active Substance: SOLIFENACIN SUCCINATE
     Indication: PRODUCT USED FOR UNKNOWN INDICATION
     Route: 065
  2. BETMIGA [Suspect]
     Active Substance: MIRABEGRON
     Indication: URGE INCONTINENCE
     Route: 065
     Dates: start: 20200623, end: 20200713

REACTIONS (5)
  - Arrhythmia [Recovering/Resolving]
  - Hypersomnia [Recovering/Resolving]
  - Malaise [Recovering/Resolving]
  - Back pain [Recovering/Resolving]
  - Dizziness [Recovering/Resolving]

NARRATIVE: CASE EVENT DATE: 20200702
